FAERS Safety Report 6245357-4 (Version None)
Quarter: 2009Q2

REPORT INFORMATION
  Report Type: 
  Country: None (occurrence: None)
  Receive Date: 20090625
  Receipt Date: 20090615
  Transmission Date: 20091009
  Serious: Yes (Other)
  Sender: FDA-Public Use
  Company Number: US-PFIZER INC-2009228329

PATIENT
  Sex: Female
  Weight: 65.76 kg

DRUGS (3)
  1. CADUET [Suspect]
     Indication: BLOOD CHOLESTEROL INCREASED
     Route: 048
     Dates: start: 20070101, end: 20080101
  2. CADUET [Suspect]
     Indication: HYPERTENSION
  3. PLAVIX [Concomitant]
     Dosage: UNK

REACTIONS (2)
  - RASH [None]
  - STENT PLACEMENT [None]
